FAERS Safety Report 4921070-8 (Version None)
Quarter: 2006Q1

REPORT INFORMATION
  Report Type: 
  Country: None (occurrence: None)
  Receive Date: 20060216
  Receipt Date: 20060209
  Transmission Date: 20060701
  Serious: Yes (Hospitalization, Other)
  Sender: FDA-Public Use
  Company Number: FRWYE377809FEB06

PATIENT
  Age: 84 Year
  Sex: Male

DRUGS (15)
  1. TAZOCILLINE (PIPERACILLIN/TAZOBACTAM, INJECTION) [Suspect]
     Indication: BRONCHITIS ACUTE
     Dosage: INTRAVENOUS
     Route: 042
     Dates: start: 20060102, end: 20060103
  2. COUMADIN [Suspect]
     Dosage: ORAL
     Route: 048
     Dates: end: 20060102
  3. ACETAMINOPHEN [Suspect]
     Dates: end: 20060102
  4. PAROXETINE HYDROCHLORIDE [Suspect]
     Dosage: 40 MG 1X PER 1 DAY, ORAL
     Route: 048
     Dates: end: 20060102
  5. FONZYLANE (BUFLOMEDIL HYDROCHLORIDE) [Suspect]
     Dates: end: 20060102
  6. FORLAX (MACROGOL) [Suspect]
     Dosage: ORAL
     Route: 048
     Dates: end: 20060102
  7. OMEPRAZOLE [Suspect]
     Dosage: ORAL
     Route: 048
     Dates: end: 20060106
  8. ACETAMINOPHEN [Suspect]
     Dates: start: 20060103, end: 20060104
  9. ALLOPURINOL [Suspect]
     Dosage: ORAL
     Route: 048
     Dates: end: 20060102
  10. DIGOXIN [Concomitant]
  11. FLUDROCORTISONE ACETATE [Concomitant]
  12. TAVANIC [Concomitant]
  13. VENTOLIN [Concomitant]
  14. ATROVENT [Concomitant]
  15. AUGMENTING [Concomitant]

REACTIONS (2)
  - CYTOLYTIC HEPATITIS [None]
  - RENAL FAILURE ACUTE [None]
